FAERS Safety Report 17758448 (Version 1)
Quarter: 2020Q2

REPORT INFORMATION
  Report Type: Spontaneous
  Country: US (occurrence: US)
  Receive Date: 20200507
  Receipt Date: 20200507
  Transmission Date: 20200714
  Serious: No
  Sender: FDA-Public Use
  Company Number: US-BAYER-2020-076608

PATIENT
  Age: 82 Year
  Sex: Female

DRUGS (1)
  1. ADEMPAS [Suspect]
     Active Substance: RIOCIGUAT
     Dosage: 1.5 MG

REACTIONS (4)
  - Dyspnoea [None]
  - Fatigue [None]
  - Intentional product use issue [None]
  - Abdominal discomfort [None]
